FAERS Safety Report 19662629 (Version 1)
Quarter: 2021Q3

REPORT INFORMATION
  Report Type: Spontaneous
  Country: US (occurrence: US)
  Receive Date: 20210806
  Receipt Date: 20210806
  Transmission Date: 20211014
  Serious: No
  Sender: FDA-Public Use
  Company Number: US-B.I. PHARMACEUTICALS,INC./RIDGEFIELD-2021-BI-119866

PATIENT
  Age: 76 Year
  Sex: Female

DRUGS (3)
  1. LOTREL [LOTEPREDNOL ETABONATE] [Concomitant]
     Active Substance: LOTEPREDNOL ETABONATE
     Indication: BLOOD PRESSURE MEASUREMENT
     Dosage: 10?40MG PO QD
     Route: 048
     Dates: start: 2011
  2. SYNTHROID [Concomitant]
     Active Substance: LEVOTHYROXINE SODIUM
     Indication: AUTOIMMUNE THYROIDITIS
     Dosage: 88MCG PO QD
     Route: 048
     Dates: start: 2001
  3. STIOLTO RESPIMAT [Suspect]
     Active Substance: OLODATEROL HYDROCHLORIDE\TIOTROPIUM BROMIDE MONOHYDRATE
     Indication: EMPHYSEMA
     Dosage: 2 PUFFS PO IN THE MORNING
     Dates: start: 202007

REACTIONS (3)
  - Diarrhoea [Not Recovered/Not Resolved]
  - Pollakiuria [Not Recovered/Not Resolved]
  - Dysphonia [Not Recovered/Not Resolved]

NARRATIVE: CASE EVENT DATE: 202107
